FAERS Safety Report 7743885-3 (Version None)
Quarter: 2011Q3

REPORT INFORMATION
  Report Type: 
  Country: None (occurrence: None)
  Receive Date: 20110912
  Receipt Date: 20110902
  Transmission Date: 20111222
  Serious: Yes (Other)
  Sender: FDA-Public Use
  Company Number: US-GLAXOSMITHKLINE-A0943359A

PATIENT
  Age: 38 Year
  Sex: Female

DRUGS (4)
  1. ADDERALL 5 [Concomitant]
  2. LAMICTAL [Suspect]
     Indication: DEPRESSION
     Dosage: 200MG PER DAY
     Route: 048
     Dates: start: 20060101, end: 20110808
  3. PRISTIQ [Concomitant]
  4. WELLBUTRIN [Concomitant]

REACTIONS (15)
  - SUICIDAL IDEATION [None]
  - MIGRAINE [None]
  - DEPRESSION [None]
  - MANIA [None]
  - MALAISE [None]
  - AMNESIA [None]
  - PANIC REACTION [None]
  - NAUSEA [None]
  - FATIGUE [None]
  - DISSOCIATION [None]
  - FEELING ABNORMAL [None]
  - ILL-DEFINED DISORDER [None]
  - CONFUSIONAL STATE [None]
  - WITHDRAWAL SYNDROME [None]
  - MEMORY IMPAIRMENT [None]
